FAERS Safety Report 4844738-0 (Version None)
Quarter: 2005Q4

REPORT INFORMATION
  Report Type: 
  Country: None (occurrence: None)
  Receive Date: 20051129
  Receipt Date: 20051118
  Transmission Date: 20060501
  Serious: Yes (Hospitalization, Other)
  Sender: FDA-Public Use
  Company Number: HQWYE002318AUG05

PATIENT
  Age: 92 Year
  Sex: Female

DRUGS (5)
  1. PANTOPRAZOLE SODIUM [Suspect]
     Dosage: 20 MG 1X PER 1 DAY
     Route: 048
     Dates: start: 20050114, end: 20050628
  2. AMLODIPINE BESYLATE [Suspect]
     Dosage: 5 MG 1X PER 1 DAY
     Route: 048
  3. CORVASAL (MOLSIDOMINE) [Suspect]
     Dosage: 4 MG 3X PER 1 DAY
     Route: 048
  4. ASPIRIN [Suspect]
     Dosage: 75 MG 1X PER 1 DAY
     Route: 048
  5. SECTRAL [Suspect]
     Dosage: 100 MG 1X PER 1 DAY
     Route: 048

REACTIONS (2)
  - DISORIENTATION [None]
  - HYPONATRAEMIA [None]
